FAERS Safety Report 14814300 (Version 1)
Quarter: 2018Q2

REPORT INFORMATION
  Report Type: Spontaneous
  Country: US (occurrence: US)
  Receive Date: 20180417
  Receipt Date: 20180417
  Transmission Date: 20180711
  Serious: No
  Sender: FDA-Public Use
  Company Number: None

PATIENT
  Age: 63 Year
  Sex: Female
  Weight: 66.15 kg

DRUGS (9)
  1. BACLOFEN. [Concomitant]
     Active Substance: BACLOFEN
  2. BUTRANS [Suspect]
     Active Substance: BUPRENORPHINE
     Indication: PAIN
     Dosage: ?          OTHER STRENGTH:MCG;QUANTITY:4 PATCH(ES);OTHER FREQUENCY:1 WEEKLY;?
     Route: 062
     Dates: start: 20171204, end: 20180410
  3. MULTIVITAMIN [Concomitant]
     Active Substance: VITAMINS
  4. DHEA [Concomitant]
     Active Substance: PRASTERONE
  5. BELBUCA [Concomitant]
     Active Substance: BUPRENORPHINE HYDROCHLORIDE
  6. TURMERIC CURCUMIN [Concomitant]
     Active Substance: HERBALS\TURMERIC
  7. DULOXETINE HCL [Concomitant]
     Active Substance: DULOXETINE HYDROCHLORIDE
  8. TEMAZEPAM. [Concomitant]
     Active Substance: TEMAZEPAM
  9. ARMOUR THYROID [Concomitant]
     Active Substance: THYROID, PORCINE

REACTIONS (3)
  - Application site burn [None]
  - Scar [None]
  - Skin exfoliation [None]

NARRATIVE: CASE EVENT DATE: 20180302
